FAERS Safety Report 9153474 (Version 1)
Quarter: 2013Q1

REPORT INFORMATION
  Report Type: Spontaneous
  Country: KR (occurrence: None)
  Receive Date: 20130204
  Receipt Date: 20130204
  Transmission Date: 20140127
  Serious: Yes (Hospitalization, Other)
  Sender: FDA-Public Use
  Company Number: 2013P1001190

PATIENT
  Sex: Female

DRUGS (5)
  1. TERBINAFINE [Suspect]
     Indication: ONYCHOMYCOSIS
     Route: 048
  2. PERPHENAZINE [Suspect]
  3. LORAZEPAM [Concomitant]
  4. DIAZEPAM [Concomitant]
  5. FLURAZEPAM [Concomitant]

REACTIONS (9)
  - Drug interaction [None]
  - Extrapyramidal disorder [None]
  - Akathisia [None]
  - Asthenia [None]
  - Anxiety [None]
  - Insomnia [None]
  - Gait disturbance [None]
  - Bradykinesia [None]
  - Depressed mood [None]
